FAERS Safety Report 11902320 (Version 4)
Quarter: 2016Q1

REPORT INFORMATION
  Report Type: Report from Study
  Country: US (occurrence: US)
  Receive Date: 20160108
  Receipt Date: 20160111
  Transmission Date: 20160526
  Serious: No
  Sender: FDA-Public Use
  Company Number: US-ABBVIE-15P-163-1489903-00

PATIENT
  Age: 58 Year
  Sex: Male

DRUGS (5)
  1. VIEKIRA PAK [Suspect]
     Active Substance: DASABUVIR\OMBITASVIR\PARITAPREVIR\RITONAVIR
     Indication: HEPATITIS C
     Dosage: TWO PINK AND ONE BEIGE IN THE MORNING AND ONE BEIGE IN THE EVENING
     Route: 048
     Dates: start: 201510
  2. LOSARTAN. [Concomitant]
     Active Substance: LOSARTAN
     Indication: PRODUCT USED FOR UNKNOWN INDICATION
     Route: 065
  3. MULTIVITAMINS [Concomitant]
     Active Substance: VITAMINS
     Indication: PRODUCT USED FOR UNKNOWN INDICATION
     Route: 065
  4. RIBASPHERE [Concomitant]
     Active Substance: RIBAVIRIN
     Indication: HEPATITIS C
     Dosage: 600MG IN THE MORNING AND 400MG IN THE EVENING
     Route: 048
  5. GLUCOSAMINE + CHONDROITIN [Concomitant]
     Indication: PRODUCT USED FOR UNKNOWN INDICATION
     Dosage: 750-375MG
     Route: 065

REACTIONS (4)
  - Headache [Unknown]
  - Blood pressure decreased [Unknown]
  - Blood pressure increased [Unknown]
  - Fatigue [Unknown]

NARRATIVE: CASE EVENT DATE: 201510
